FAERS Safety Report 7563813-3 (Version None)
Quarter: 2011Q2

REPORT INFORMATION
  Report Type: 
  Country: None (occurrence: None)
  Receive Date: 20110615
  Receipt Date: 20110609
  Transmission Date: 20111010
  Serious: Yes (Hospitalization)
  Sender: FDA-Public Use
  Company Number: JP-1186590

PATIENT
  Sex: Male

DRUGS (1)
  1. FLUORESCITE [Suspect]
     Dosage: 500MG IV INTRAOCULAR
     Route: 031
     Dates: start: 20110603, end: 20110603

REACTIONS (6)
  - PULSE ABSENT [None]
  - COUGH [None]
  - NAUSEA [None]
  - RESPIRATORY ARREST [None]
  - CHILLS [None]
  - BLOOD PRESSURE DECREASED [None]
